FAERS Safety Report 13722976 (Version 2)
Quarter: 2017Q3

REPORT INFORMATION
  Report Type: Spontaneous
  Country: US (occurrence: US)
  Receive Date: 20170706
  Receipt Date: 20170922
  Transmission Date: 20171127
  Serious: No
  Sender: FDA-Public Use
  Company Number: US-JNJFOC-20170417112

PATIENT
  Sex: Female
  Weight: 116.12 kg

DRUGS (3)
  1. PROVENTIL [Concomitant]
     Active Substance: ALBUTEROL
     Route: 055
  2. FLONASE [Concomitant]
     Active Substance: FLUTICASONE PROPIONATE
     Route: 045
  3. LEVAQUIN [Suspect]
     Active Substance: LEVOFLOXACIN
     Indication: INFLUENZA
     Dosage: DRUG TOOK FOR 10 DAYS, HAD TWO COURSES OF IT (TOTAL 20 DAYS)
     Route: 048
     Dates: start: 20170102

REACTIONS (3)
  - Anosmia [Not Recovered/Not Resolved]
  - Speech disorder [Unknown]
  - Headache [Not Recovered/Not Resolved]
